FAERS Safety Report 6695774-3 (Version None)
Quarter: 2010Q2

REPORT INFORMATION
  Report Type: 
  Country: None (occurrence: None)
  Receive Date: 20100423
  Receipt Date: 20100423
  Transmission Date: 20101027
  Serious: No
  Sender: FDA-Public Use
  Company Number: None

PATIENT
  Age: 48 Year
  Sex: Male
  Weight: 117.9352 kg

DRUGS (4)
  1. CYMBALTA [Suspect]
     Indication: BACK DISORDER
     Dosage: 30 MG TWICE A DAY PO
     Route: 048
     Dates: start: 20070205, end: 20100325
  2. CYMBALTA [Suspect]
     Indication: MUSCULOSKELETAL DISCOMFORT
     Dosage: 30 MG TWICE A DAY PO
     Route: 048
     Dates: start: 20070205, end: 20100325
  3. PRAVACHOL [Concomitant]
  4. NEXIUM [Concomitant]

REACTIONS (6)
  - ANAPHYLACTOID REACTION [None]
  - BLOOD PRESSURE INCREASED [None]
  - DECREASED APPETITE [None]
  - IMPAIRED DRIVING ABILITY [None]
  - REFLEXES ABNORMAL [None]
  - VOMITING [None]
